FAERS Safety Report 8216258-7 (Version None)
Quarter: 2012Q1

REPORT INFORMATION
  Report Type: 
  Country: None (occurrence: None)
  Receive Date: 20120316
  Receipt Date: 20120312
  Transmission Date: 20120608
  Serious: Yes (Other)
  Sender: FDA-Public Use
  Company Number: PHEH2012US005591

PATIENT
  Sex: Male

DRUGS (2)
  1. RECLAST [Suspect]
     Dosage: UNK UKN, UNK
     Route: 042
     Dates: start: 20111201
  2. CHLORPHENIRAMINE MALEATE [Concomitant]

REACTIONS (2)
  - LIP SWELLING [None]
  - SWOLLEN TONGUE [None]
